FAERS Safety Report 5574483-8 (Version None)
Quarter: 2007Q4

REPORT INFORMATION
  Report Type: 
  Country: None (occurrence: None)
  Receive Date: 20071227
  Receipt Date: 20071217
  Transmission Date: 20080405
  Serious: Yes (Other)
  Sender: FDA-Public Use
  Company Number: JP-ROCHE-538313

PATIENT
  Age: 5 Year
  Sex: Male
  Weight: 16 kg

DRUGS (1)
  1. TAMIFLU [Suspect]
     Dosage: FORM REPORTED: DRY SYRUP
     Route: 048
     Dates: start: 20071216, end: 20071216

REACTIONS (1)
  - HALLUCINATION [None]
